FAERS Safety Report 4325777-5 (Version None)
Quarter: 2004Q1

REPORT INFORMATION
  Report Type: 
  Country: None (occurrence: None)
  Receive Date: 20040324
  Receipt Date: 20040310
  Transmission Date: 20041129
  Serious: Yes (Hospitalization)
  Sender: FDA-Public Use
  Company Number: USA040361523

PATIENT
  Age: 18 Year
  Sex: Male
  Weight: 113 kg

DRUGS (7)
  1. ZYPREXA [Suspect]
     Indication: SCHIZOAFFECTIVE DISORDER
     Dosage: 30 MG DAY
     Dates: start: 20020801
  2. RISPERDAL [Concomitant]
  3. COGENTIN [Concomitant]
  4. ABILIFY [Concomitant]
  5. HALDOL DECANOATE (HALOPERIDOL DECANOATE) [Concomitant]
  6. DEPAKOTE [Concomitant]
  7. PROVIGIL [Concomitant]

REACTIONS (2)
  - DEEP VEIN THROMBOSIS [None]
  - PULMONARY EMBOLISM [None]
